FAERS Safety Report 20962361 (Version 7)
Quarter: 2023Q1

REPORT INFORMATION
  Report Type: Spontaneous
  Country: US (occurrence: US)
  Receive Date: 20220615
  Receipt Date: 20230112
  Transmission Date: 20230417
  Serious: Yes (Other)
  Sender: FDA-Public Use
  Company Number: US-PFIZER INC-PV202200002050

PATIENT
  Age: 65 Year
  Sex: Female

DRUGS (5)
  1. CIBINQO [Suspect]
     Active Substance: ABROCITINIB
     Indication: Eczema
     Dosage: 200 MG, 1X/DAY
     Route: 048
  2. CIBINQO [Suspect]
     Active Substance: ABROCITINIB
     Dosage: 100 MG, 1X/DAY
     Route: 048
  3. ROSUVASTATIN [Concomitant]
     Active Substance: ROSUVASTATIN
     Indication: Blood cholesterol increased
     Dosage: UNK
     Route: 048
  4. SYNTHROID [Concomitant]
     Active Substance: LEVOTHYROXINE SODIUM
     Indication: Thyroid disorder
     Dosage: UNK
     Route: 048
  5. EDARBI [Concomitant]
     Active Substance: AZILSARTAN KAMEDOXOMIL
     Indication: Hypertension
     Dosage: UNK
     Route: 048

REACTIONS (15)
  - Fall [Unknown]
  - Wrist fracture [Unknown]
  - Arthralgia [Unknown]
  - Wrong technique in product usage process [Unknown]
  - Intentional product use issue [Unknown]
  - Eczema [Unknown]
  - Skin exfoliation [Recovered/Resolved]
  - Acne cystic [Not Recovered/Not Resolved]
  - Skin disorder [Unknown]
  - Hypotrichosis [Unknown]
  - Skin exfoliation [Recovered/Resolved]
  - Dry skin [Unknown]
  - Dry eye [Unknown]
  - Dry skin [Unknown]
  - Skin exfoliation [Unknown]
